FAERS Safety Report 16620354 (Version 4)
Quarter: 2022Q1

REPORT INFORMATION
  Report Type: Report from Study
  Country: ES (occurrence: ES)
  Receive Date: 20190723
  Receipt Date: 20220202
  Transmission Date: 20220424
  Serious: Yes (Other)
  Sender: FDA-Public Use
  Company Number: ES-JNJFOC-20190715895

PATIENT

DRUGS (1)
  1. REMICADE [Suspect]
     Active Substance: INFLIXIMAB
     Indication: Inflammatory bowel disease
     Route: 042

REACTIONS (7)
  - Lupus-like syndrome [Unknown]
  - Neoplasm [Unknown]
  - Infusion related reaction [Unknown]
  - Type IV hypersensitivity reaction [Unknown]
  - Paradoxical psoriasis [Unknown]
  - Infection [Unknown]
  - Therapeutic product effect decreased [Unknown]
